FAERS Safety Report 7450691-6 (Version None)
Quarter: 2011Q2

REPORT INFORMATION
  Report Type: 
  Country: None (occurrence: None)
  Receive Date: 20110502
  Receipt Date: 20110415
  Transmission Date: 20111010
  Serious: Yes (Hospitalization, Other)
  Sender: FDA-Public Use
  Company Number: BR-SANOFI-AVENTIS-2011SA023663

PATIENT
  Sex: Female

DRUGS (6)
  1. FUROSEMIDE [Concomitant]
     Dates: start: 20110410
  2. LANTUS [Suspect]
     Indication: TYPE 2 DIABETES MELLITUS
     Dosage: IN THE MORNING
     Route: 058
  3. ENALAPRIL [Concomitant]
     Indication: BLOOD PRESSURE
     Route: 048
  4. HUMALOG [Concomitant]
     Indication: TYPE 2 DIABETES MELLITUS
     Dosage: ACCORDING TO GLYCEMIA
     Route: 058
  5. AUTOPEN 24 [Concomitant]
  6. LANTUS [Suspect]
     Dosage: AT NIGHT (PRN)
     Route: 058

REACTIONS (3)
  - DIABETIC NEUROPATHY [None]
  - OCULAR ISCHAEMIC SYNDROME [None]
  - BLOOD PRESSURE INCREASED [None]
